FAERS Safety Report 7564649-X (Version None)
Quarter: 2011Q2

REPORT INFORMATION
  Report Type: 
  Country: None (occurrence: None)
  Receive Date: 20110622
  Receipt Date: 20100913
  Transmission Date: 20111010
  Serious: Yes (Other)
  Sender: FDA-Public Use
  Company Number: US-MYLANLABS-2010S1014054

PATIENT
  Age: 30 Year
  Sex: Male

DRUGS (9)
  1. CLOZAPINE [Suspect]
     Dates: start: 20100409, end: 20100730
  2. LORAZEPAM [Concomitant]
     Indication: DYSKINESIA
     Dosage: TID PRN
     Route: 048
  3. BENZTROPINE MESYLATE [Concomitant]
     Route: 048
     Dates: start: 20100818
  4. GABAPENTIN [Concomitant]
     Dosage: AM, SUPPER{ HS
     Route: 048
  5. RISPERIDONE [Concomitant]
     Indication: AGITATION
     Dosage: BID PRN
     Route: 048
     Dates: start: 20100813
  6. HALDOL [Concomitant]
     Dosage: AM/HS
     Route: 048
     Dates: start: 20100805
  7. CLOZAPINE [Suspect]
  8. LORAZEPAM [Concomitant]
     Route: 048
     Dates: start: 20100825
  9. ZYPREXA [Concomitant]
     Route: 048
     Dates: start: 20100816

REACTIONS (2)
  - GRANULOCYTOPENIA [None]
  - LEUKOPENIA [None]
